FAERS Safety Report 20406529 (Version 2)
Quarter: 2022Q1

REPORT INFORMATION
  Report Type: Spontaneous
  Country: JP (occurrence: JP)
  Receive Date: 20220131
  Receipt Date: 20220303
  Transmission Date: 20220423
  Serious: Yes (Other)
  Sender: FDA-Public Use
  Company Number: JP-002147023-NVSJ2022JP002218

PATIENT
  Age: 25 Year
  Sex: Female

DRUGS (1)
  1. VOLTAREN [Suspect]
     Active Substance: DICLOFENAC SODIUM
     Indication: Pain
     Dosage: 25 MG, PRN (FIVE TIMES)
     Route: 048
     Dates: start: 202101, end: 202101

REACTIONS (1)
  - Erythema multiforme [Unknown]
